FAERS Safety Report 20170998 (Version 4)
Quarter: 2022Q1

REPORT INFORMATION
  Report Type: Other
  Country: CN (occurrence: CN)
  Receive Date: 20211210
  Receipt Date: 20220318
  Transmission Date: 20220424
  Serious: Yes (Other)
  Sender: FDA-Public Use
  Company Number: CN-002147023-NVSC2021CN275875

PATIENT
  Age: 60 Year
  Sex: Male

DRUGS (7)
  1. RANIBIZUMAB [Suspect]
     Active Substance: RANIBIZUMAB
     Indication: Neovascular age-related macular degeneration
     Dosage: 0.05 ML
     Route: 065
     Dates: start: 20191119
  2. RANIBIZUMAB [Suspect]
     Active Substance: RANIBIZUMAB
     Dosage: 0.05 ML
     Route: 065
     Dates: start: 20191224
  3. RANIBIZUMAB [Suspect]
     Active Substance: RANIBIZUMAB
     Dosage: 0.05 ML
     Route: 065
     Dates: start: 20200121
  4. RANIBIZUMAB [Suspect]
     Active Substance: RANIBIZUMAB
     Route: 031
  5. ESCULIN [Concomitant]
     Active Substance: ESCULIN
     Indication: Age-related macular degeneration
     Dosage: 1 DRP
     Route: 047
     Dates: start: 20200623, end: 20200730
  6. DICLOFENAC SODIUM [Concomitant]
     Active Substance: DICLOFENAC SODIUM
     Indication: Laser therapy
     Dosage: 1 DRP
     Route: 047
     Dates: start: 20210621, end: 20210703
  7. SODIUM HYALURONATE [Concomitant]
     Active Substance: HYALURONATE SODIUM
     Indication: Cataract
     Dosage: 1 DRP
     Route: 047
     Dates: start: 20200623, end: 20200710

REACTIONS (4)
  - Cataract [Recovered/Resolved]
  - Asthenopia [Recovered/Resolved]
  - Trichiasis [Recovered/Resolved]
  - Conjunctivitis [Recovered/Resolved]

NARRATIVE: CASE EVENT DATE: 20191225
